FAERS Safety Report 5665255-4 (Version None)
Quarter: 2008Q1

REPORT INFORMATION
  Report Type: 
  Country: None (occurrence: None)
  Receive Date: 20080314
  Receipt Date: 20050106
  Transmission Date: 20080703
  Serious: No
  Sender: FDA-Public Use
  Company Number: US-ABBOTT-04P-163-0284665-00

PATIENT
  Sex: Female
  Weight: 72.64 kg

DRUGS (9)
  1. HUMIRA [Suspect]
     Indication: RHEUMATOID ARTHRITIS
     Route: 058
     Dates: start: 20041104
  2. NAPROXEN SODIUM [Concomitant]
     Indication: RHEUMATOID ARTHRITIS
     Route: 048
     Dates: start: 20040701
  3. VITAMIN CAP [Concomitant]
     Indication: DRUG USE FOR UNKNOWN INDICATION
     Route: 048
  4. ATORVASTATIN CALCIUM [Concomitant]
     Indication: BLOOD CHOLESTEROL INCREASED
     Route: 048
     Dates: start: 20000101
  5. ADVAIR DISKUS 100/50 [Concomitant]
     Indication: EMPHYSEMA
     Route: 055
     Dates: start: 20020101
  6. ALBUTEROL [Concomitant]
     Indication: EMPHYSEMA
     Route: 055
     Dates: start: 20000101
  7. DYAZIDE [Concomitant]
     Indication: FLUID RETENTION
     Dosage: 37.5/2.5 MILLIGRAMS
     Route: 048
  8. DYAZIDE [Concomitant]
     Route: 048
  9. DONNATAL [Concomitant]
     Indication: MUSCLE SPASMS
     Route: 048
     Dates: start: 20000101

REACTIONS (3)
  - CONTUSION [None]
  - DRUG INEFFECTIVE [None]
  - MUSCLE SPASMS [None]
